FAERS Safety Report 4526904-7 (Version None)
Quarter: 2004Q4

REPORT INFORMATION
  Report Type: 
  Country: None (occurrence: None)
  Receive Date: 20041213
  Receipt Date: 20041203
  Transmission Date: 20050328
  Serious: Yes (Hospitalization, Disabling)
  Sender: FDA-Public Use
  Company Number: 2003-09-0125

PATIENT
  Age: 79 Year
  Sex: Female
  Weight: 34 kg

DRUGS (8)
  1. GENTAMICIN SULFATE [Suspect]
     Indication: EYE INFLAMMATION
     Dosage: QH/DAY OPHTHALMIC
     Route: 047
     Dates: start: 20020808, end: 20020902
  2. ATROPINE [Suspect]
     Indication: EYE INFLAMMATION
     Dosage: 2 DROPS QD OPHTHALMIC
     Route: 047
     Dates: start: 20020808, end: 20020902
  3. CELESTONE PHOSPHATE OPHTHALMIC SOLUTION [Suspect]
     Indication: ANTIINFLAMMATORY THERAPY
     Dosage: 4-3 DROPS QD OPHTHALMIC
     Route: 047
     Dates: start: 20020820, end: 20021004
  4. LEVOFLOXACIN [Concomitant]
  5. FLUOROMETHOLONE [Concomitant]
  6. DICLOFENAC SODIUM [Concomitant]
  7. TRUSOPT [Concomitant]
  8. OFLOXACIN [Concomitant]

REACTIONS (3)
  - CORNEAL DEPOSITS [None]
  - DRY EYE [None]
  - MEDICATION RESIDUE [None]
